FAERS Safety Report 26116068 (Version 4)
Quarter: 2025Q4

REPORT INFORMATION
  Report Type: Report from Study
  Country: CA (occurrence: CA)
  Receive Date: 20251203
  Receipt Date: 20251229
  Transmission Date: 20260118
  Serious: Yes (Other)
  Sender: ABBVIE
  Company Number: CA-ABBVIE-6570278

PATIENT
  Age: 66 Year
  Sex: Male

DRUGS (10)
  1. VYALEV [Suspect]
     Active Substance: FOSCARBIDOPA\FOSLEVODOPA
     Indication: Product used for unknown indication
     Route: 058
     Dates: start: 20251113, end: 202511
  2. VYALEV [Suspect]
     Active Substance: FOSCARBIDOPA\FOSLEVODOPA
     Dosage: LOW RATE WAS 0.40
     Route: 058
     Dates: start: 202511, end: 202511
  3. VYALEV [Suspect]
     Active Substance: FOSCARBIDOPA\FOSLEVODOPA
     Dosage: BASE AT 0.42
     Route: 058
     Dates: start: 202511, end: 20251218
  4. VYALEV [Suspect]
     Active Substance: FOSCARBIDOPA\FOSLEVODOPA
     Route: 058
     Dates: start: 2025
  5. CARBIDOPA\LEVODOPA [Concomitant]
     Active Substance: CARBIDOPA\LEVODOPA
     Indication: Product used for unknown indication
     Dosage: 100/25MG
  6. PRAMIPEXOLE [Concomitant]
     Active Substance: PRAMIPEXOLE
     Indication: Product used for unknown indication
  7. CLONAZEPAM [Concomitant]
     Active Substance: CLONAZEPAM
     Indication: Product used for unknown indication
  8. ENTACAPONE [Concomitant]
     Active Substance: ENTACAPONE
     Indication: Product used for unknown indication
  9. Apo levocarb cr [Concomitant]
     Indication: Product used for unknown indication
     Dosage: 200/50MG
  10. QUETIAPINE [Concomitant]
     Active Substance: QUETIAPINE
     Indication: Product used for unknown indication

REACTIONS (16)
  - Unresponsive to stimuli [Unknown]
  - Pain [Unknown]
  - Somnolence [Unknown]
  - Drug ineffective [Unknown]
  - On and off phenomenon [Unknown]
  - Musculoskeletal stiffness [Unknown]
  - Obsessive thoughts [Unknown]
  - Freezing phenomenon [Unknown]
  - Limb discomfort [Unknown]
  - Headache [Unknown]
  - Vascular pain [Unknown]
  - Tension [Unknown]
  - Dyskinesia [Unknown]
  - Insomnia [Unknown]
  - Hallucination [Unknown]
  - Device issue [Unknown]

NARRATIVE: CASE EVENT DATE: 20251101
